FAERS Safety Report 5977464-5 (Version None)
Quarter: 2008Q4

REPORT INFORMATION
  Report Type: 
  Country: None (occurrence: None)
  Receive Date: 20081203
  Receipt Date: 20081128
  Transmission Date: 20090506
  Serious: Yes (Hospitalization)
  Sender: FDA-Public Use
  Company Number: B0548678A

PATIENT
  Age: 70 Year
  Sex: Female

DRUGS (9)
  1. ARTIST [Suspect]
     Indication: DRUG USE FOR UNKNOWN INDICATION
     Dosage: 10MG PER DAY
     Route: 048
     Dates: start: 20080924
  2. HERCEPTIN [Suspect]
     Indication: BREAST CANCER
     Route: 042
  3. MYSLEE [Concomitant]
  4. WARFARIN SODIUM [Concomitant]
     Dates: start: 20080924
  5. MICARDIS [Concomitant]
  6. LIVALO [Concomitant]
  7. LOXONIN [Concomitant]
     Dates: start: 20080620, end: 20081103
  8. AROMASIN [Concomitant]
     Dates: start: 20080703
  9. MUCOSTA [Concomitant]
     Dates: start: 20080620, end: 20081103

REACTIONS (10)
  - BLOOD UREA INCREASED [None]
  - BLOOD URIC ACID INCREASED [None]
  - C-REACTIVE PROTEIN INCREASED [None]
  - CARDIAC FAILURE CONGESTIVE [None]
  - CONDITION AGGRAVATED [None]
  - DYSPNOEA [None]
  - DYSPNOEA EXERTIONAL [None]
  - ORTHOPNOEA [None]
  - PAINFUL RESPIRATION [None]
  - RED BLOOD CELL COUNT DECREASED [None]
